FAERS Safety Report 25316639 (Version 3)
Quarter: 2025Q3

REPORT INFORMATION
  Report Type: Spontaneous
  Country: JP (occurrence: JP)
  Receive Date: 20250515
  Receipt Date: 20250711
  Transmission Date: 20251021
  Serious: Yes (Hospitalization)
  Sender: ROCHE
  Company Number: JP-CHUGAI-2025015017

PATIENT
  Age: 9 Year
  Sex: Male
  Weight: 32.8 kg

DRUGS (9)
  1. RITUXAN [Suspect]
     Active Substance: RITUXIMAB
     Indication: Nephrotic syndrome
     Route: 042
     Dates: start: 20221014
  2. RITUXAN [Suspect]
     Active Substance: RITUXIMAB
     Route: 042
     Dates: start: 20241004
  3. CELLCEPT [Suspect]
     Active Substance: MYCOPHENOLATE MOFETIL
     Indication: Nephrotic syndrome
     Route: 048
     Dates: start: 20230822
  4. CYCLOSPORINE [Concomitant]
     Active Substance: CYCLOSPORINE
     Indication: Nephrotic syndrome
     Route: 048
     Dates: start: 20211014
  5. CONCERTA [Concomitant]
     Active Substance: METHYLPHENIDATE HYDROCHLORIDE
     Indication: Attention deficit hyperactivity disorder
     Dosage: 18 MILLIGRAM, QD
     Route: 048
  6. QUETIAPINE FUMARATE [Concomitant]
     Active Substance: QUETIAPINE FUMARATE
     Indication: Attention deficit hyperactivity disorder
     Dosage: 0.5 DOSAGE FORM, QD
     Route: 048
     Dates: start: 20230926
  7. QUETIAPINE FUMARATE [Concomitant]
     Active Substance: QUETIAPINE FUMARATE
     Dosage: 1 DOSAGE FORM, QD
     Route: 048
  8. FEXOFENADINE HYDROCHLORIDE [Concomitant]
     Active Substance: FEXOFENADINE HYDROCHLORIDE
     Indication: Seasonal allergy
     Dosage: 30 MILLIGRAM, BID
     Route: 048
     Dates: start: 20230316
  9. PRANLUKAST [Concomitant]
     Active Substance: PRANLUKAST
     Indication: Seasonal allergy
     Dosage: 112.5 MILLIGRAM, BID
     Route: 048

REACTIONS (2)
  - Arthritis [Recovering/Resolving]
  - Off label use [Unknown]

NARRATIVE: CASE EVENT DATE: 20230822
